FAERS Safety Report 9284197 (Version 1)
Quarter: 2013Q2

REPORT INFORMATION
  Report Type: Spontaneous
  Country: CN (occurrence: CN)
  Receive Date: 20130510
  Receipt Date: 20130510
  Transmission Date: 20140414
  Serious: Yes (Hospitalization)
  Sender: FDA-Public Use
  Company Number: CN-SANOFI-AVENTIS-2013SA045903

PATIENT
  Age: 69 Year
  Sex: Female
  Weight: 45 kg

DRUGS (3)
  1. ELOXATIN [Suspect]
     Indication: GASTRIC CANCER
     Route: 041
     Dates: start: 20120203, end: 20120203
  2. CALCIUM FOLINATE [Concomitant]
     Route: 041
     Dates: start: 20120203, end: 20120203
  3. 5-FU [Concomitant]
     Dosage: 1750MG CIVIC 46H AND 1500G IP
     Dates: start: 20120203, end: 20120203

REACTIONS (1)
  - Bone marrow failure [Not Recovered/Not Resolved]
